FAERS Safety Report 8518197-0 (Version None)
Quarter: 2012Q3

REPORT INFORMATION
  Report Type: 
  Country: None (occurrence: None)
  Receive Date: 20120718
  Receipt Date: 20111109
  Transmission Date: 20120928
  Serious: No
  Sender: FDA-Public Use
  Company Number: US-BRISTOL-MYERS SQUIBB COMPANY-16206641

PATIENT
  Age: 26 Year
  Sex: Female
  Weight: 84 kg

DRUGS (4)
  1. DEPO-PROVERA [Suspect]
     Dosage: DEPO PROVERA SHOT
     Route: 030
     Dates: start: 20110805
  2. DEPAKOTE [Concomitant]
     Route: 048
  3. IRON [Concomitant]
  4. WARFARIN SODIUM [Suspect]
     Indication: THROMBOSIS
     Route: 048

REACTIONS (1)
  - MENSTRUATION IRREGULAR [None]
